FAERS Safety Report 8129591-4 (Version None)
Quarter: 2012Q1

REPORT INFORMATION
  Report Type: 
  Country: None (occurrence: None)
  Receive Date: 20120210
  Receipt Date: 20120207
  Transmission Date: 20120608
  Serious: Yes (Congenital Anomaly)
  Sender: FDA-Public Use
  Company Number: US-GLAXOSMITHKLINE-A0963964A

PATIENT

DRUGS (2)
  1. PAXIL [Suspect]
     Indication: PRODUCT USED FOR UNKNOWN INDICATION
     Dosage: 10MG PER DAY
     Route: 064
  2. INSULIN [Concomitant]
     Route: 064

REACTIONS (6)
  - POLYDACTYLY [None]
  - PATENT DUCTUS ARTERIOSUS [None]
  - DACRYOSTENOSIS ACQUIRED [None]
  - FOETAL EXPOSURE DURING PREGNANCY [None]
  - DYSMORPHISM [None]
  - HEART DISEASE CONGENITAL [None]
